FAERS Safety Report 7486135-8 (Version None)
Quarter: 2011Q2

REPORT INFORMATION
  Report Type: 
  Country: None (occurrence: None)
  Receive Date: 20110517
  Receipt Date: 20110511
  Transmission Date: 20111010
  Serious: Yes (Hospitalization)
  Sender: FDA-Public Use
  Company Number: FR-PFIZER INC-FR-WYE-H08158809

PATIENT
  Age: 71 Year
  Sex: Female

DRUGS (8)
  1. STABLON [Concomitant]
     Route: 065
  2. PRAVASTATINE ^SQUIBB^ [Concomitant]
     Dosage: UNK
     Route: 065
     Dates: end: 20090104
  3. ALDALIX [Suspect]
     Dosage: UNK
     Route: 048
     Dates: end: 20090104
  4. DOMPERIDONE [Suspect]
     Dosage: UNK
     Route: 048
     Dates: end: 20090104
  5. DILTIAZEM HCL [Suspect]
     Dosage: UNK
     Route: 048
     Dates: start: 20081221, end: 20081229
  6. VOLTAREN [Suspect]
     Dosage: UNK
     Route: 048
     Dates: end: 20090102
  7. BETAHISTINE [Concomitant]
     Route: 065
  8. PANTOPRAZOLE [Suspect]
     Dosage: UNK
     Route: 048
     Dates: end: 20090102

REACTIONS (1)
  - DERMATITIS EXFOLIATIVE [None]
